FAERS Safety Report 22302487 (Version 3)
Quarter: 2023Q2

REPORT INFORMATION
  Report Type: Spontaneous
  Country: US (occurrence: US)
  Receive Date: 20230510
  Receipt Date: 20230526
  Transmission Date: 20230722
  Serious: No
  Sender: FDA-Public Use
  Company Number: US-Nobelpharma America, LLC-NPA-2023-00744

PATIENT
  Age: 16 Year
  Sex: Female

DRUGS (3)
  1. HYFTOR [Suspect]
     Active Substance: SIROLIMUS
     Indication: Tuberous sclerosis complex
     Dosage: APPLY 400MG TOPICALLY DAILY
     Route: 061
     Dates: start: 20230317
  2. ENALAPRIL [Concomitant]
     Active Substance: ENALAPRIL
  3. RISPERIDONE [Concomitant]
     Active Substance: RISPERIDONE

REACTIONS (5)
  - Dry skin [Not Recovered/Not Resolved]
  - Sensitive skin [Not Recovered/Not Resolved]
  - Erythema [Unknown]
  - Photosensitivity reaction [Unknown]
  - Product dose omission issue [None]

NARRATIVE: CASE EVENT DATE: 20230101
